FAERS Safety Report 18009219 (Version 2)
Quarter: 2021Q1

REPORT INFORMATION
  Report Type: Report from Study
  Country: US (occurrence: US)
  Receive Date: 20200710
  Receipt Date: 20210304
  Transmission Date: 20210419
  Serious: Yes (Death, Other)
  Sender: FDA-Public Use
  Company Number: US-SAOL THERAPEUTICS-2020SAO00133

PATIENT
  Age: 42 Year
  Sex: Female
  Weight: 78.91 kg

DRUGS (2)
  1. LIORESAL [Suspect]
     Active Substance: BACLOFEN
     Dosage: 1209.316 ?G, \DAY
  2. LIORESAL [Suspect]
     Active Substance: BACLOFEN
     Dosage: 1209 ?G, \DAY (ALSO REPORTED AS 1210.93865 MCG/DAY )
     Route: 037

REACTIONS (3)
  - Disease progression [Fatal]
  - Implant site infection [Recovered/Resolved]
  - Cerebral palsy [Fatal]

NARRATIVE: CASE EVENT DATE: 20200504
